FAERS Safety Report 13700986 (Version 1)
Quarter: 2017Q2

REPORT INFORMATION
  Report Type: Spontaneous
  Country: DK (occurrence: DK)
  Receive Date: 20170629
  Receipt Date: 20170629
  Transmission Date: 20170830
  Serious: Yes (Other)
  Sender: FDA-Public Use
  Company Number: DK-PFIZER INC-2017277414

PATIENT
  Age: 33 Year
  Sex: Female

DRUGS (2)
  1. VENLAFAXINE HCL [Suspect]
     Active Substance: VENLAFAXINE HYDROCHLORIDE
     Indication: DEPRESSION
     Dosage: 150 MG, UNK
     Route: 048
     Dates: end: 2012
  2. VENLAFAXINE HCL [Suspect]
     Active Substance: VENLAFAXINE HYDROCHLORIDE
     Indication: STRESS
     Dosage: 75 MG, UNK
     Route: 048
     Dates: start: 20100920

REACTIONS (4)
  - Rash [Unknown]
  - Rash pruritic [Unknown]
  - Staphylococcal infection [Unknown]
  - Rash generalised [Unknown]

NARRATIVE: CASE EVENT DATE: 2011
